FAERS Safety Report 10241267 (Version 2)
Quarter: 2014Q3

REPORT INFORMATION
  Report Type: Spontaneous
  Country: US (occurrence: US)
  Receive Date: 20140617
  Receipt Date: 20140702
  Transmission Date: 20150326
  Serious: No
  Sender: FDA-Public Use
  Company Number: US-PFIZER INC-2014162845

PATIENT
  Age: 76 Year
  Sex: Male
  Weight: 89.8 kg

DRUGS (2)
  1. SUTENT [Suspect]
     Active Substance: SUNITINIB MALATE
     Indication: LUNG NEOPLASM MALIGNANT
     Dosage: 50 MG, CYCLIC
     Dates: start: 20140512
  2. COUMADIN [Concomitant]
     Active Substance: WARFARIN SODIUM
     Dosage: UNK

REACTIONS (3)
  - Dysgeusia [Unknown]
  - Dysphagia [Unknown]
  - Oral pain [Unknown]

NARRATIVE: CASE EVENT DATE: 201405
